FAERS Safety Report 4797426-3 (Version None)
Quarter: 2005Q4

REPORT INFORMATION
  Report Type: 
  Country: None (occurrence: None)
  Receive Date: 20051013
  Receipt Date: 20051003
  Transmission Date: 20060501
  Serious: Yes (Other)
  Sender: FDA-Public Use
  Company Number: US-KINGPHARMUSA00001-K200501298

PATIENT
  Age: 72 Year
  Sex: Female

DRUGS (8)
  1. ALTACE [Suspect]
     Indication: HYPERTENSION
     Dosage: 10 MG, QD
     Route: 048
     Dates: start: 20050301
  2. AMITRIPTYLINE HCL [Concomitant]
     Dosage: 10 MG, UNK
     Route: 048
  3. ATORVASTATIN [Concomitant]
     Dosage: 10 MG, UNK
     Route: 048
  4. LANSOPRAZOLE [Concomitant]
     Dosage: 30 MG, UNK
     Route: 048
  5. MELOXICAM [Concomitant]
     Dosage: 15 MG, UNK
     Route: 048
  6. PARACETAMOL [Concomitant]
     Dosage: 2000-4000 MG, QD
     Route: 048
  7. SALBUTAMOL [Concomitant]
     Dosage: 200 UG, UNK
  8. SENNA [Concomitant]
     Dosage: 7 5-1 5 MG, QD
     Route: 048

REACTIONS (1)
  - ABSCESS [None]
